FAERS Safety Report 7177770-5 (Version None)
Quarter: 2010Q4

REPORT INFORMATION
  Report Type: 
  Country: None (occurrence: None)
  Receive Date: 20101123
  Receipt Date: 20100813
  Transmission Date: 20110411
  Serious: No
  Sender: FDA-Public Use
  Company Number: 017196

PATIENT
  Sex: Female
  Weight: 90.3 kg

DRUGS (7)
  1. CIMZIA [Suspect]
     Indication: CROHN'S DISEASE
     Dosage: (200 MG 1X/MONTH SUBCUTANEOUS)
     Route: 058
     Dates: start: 20100701
  2. PENTASA [Concomitant]
  3. GEMFIBROZIL [Concomitant]
  4. METHOTREXATE [Concomitant]
  5. LANTUS [Concomitant]
  6. ACIPHEX [Concomitant]
  7. LOVAZA [Concomitant]

REACTIONS (3)
  - ABDOMINAL PAIN UPPER [None]
  - FATIGUE [None]
  - NAUSEA [None]
